FAERS Safety Report 14067404 (Version 1)
Quarter: 2017Q4

REPORT INFORMATION
  Report Type: Spontaneous
  Country: US (occurrence: US)
  Receive Date: 20171008
  Receipt Date: 20171008
  Transmission Date: 20180321
  Serious: Yes (Life-Threatening, Other)
  Sender: FDA-Public Use
  Company Number: None

PATIENT
  Age: 61 Year
  Sex: Female
  Weight: 74.7 kg

DRUGS (1)
  1. TRINTELLIX [Suspect]
     Active Substance: VORTIOXETINE HYDROBROMIDE
     Indication: DEPRESSION
     Dosage: ?          QUANTITY:2 TABLET(S);?
     Route: 048

REACTIONS (6)
  - Slow speech [None]
  - Incoherent [None]
  - Depression [None]
  - Headache [None]
  - Serotonin syndrome [None]
  - Joint swelling [None]

NARRATIVE: CASE EVENT DATE: 20171005
